FAERS Safety Report 12176851 (Version 1)
Quarter: 2016Q1

REPORT INFORMATION
  Report Type: Spontaneous
  Country: US (occurrence: US)
  Receive Date: 20160314
  Receipt Date: 20160314
  Transmission Date: 20160526
  Serious: No
  Sender: FDA-Public Use
  Company Number: US-PFIZER INC-2016108595

PATIENT
  Age: 52 Year
  Sex: Male

DRUGS (3)
  1. LYRICA [Suspect]
     Active Substance: PREGABALIN
     Indication: NEURALGIA
     Dosage: 75 MG, 2X/DAY
     Route: 048
     Dates: start: 2013
  2. AVANDIA [Suspect]
     Active Substance: ROSIGLITAZONE MALEATE
  3. ACTOS [Suspect]
     Active Substance: PIOGLITAZONE HYDROCHLORIDE

REACTIONS (2)
  - Oedema peripheral [Unknown]
  - Atrophy [Unknown]

NARRATIVE: CASE EVENT DATE: 2013
